FAERS Safety Report 7685266-7 (Version None)
Quarter: 2011Q3

REPORT INFORMATION
  Report Type: 
  Country: None (occurrence: None)
  Receive Date: 20110816
  Receipt Date: 20110810
  Transmission Date: 20111222
  Serious: Yes (Death, Hospitalization)
  Sender: FDA-Public Use
  Company Number: DE-SANOFI-AVENTIS-2011SA029942

PATIENT
  Age: 22 Year
  Sex: Female
  Weight: 63 kg

DRUGS (7)
  1. FLUOROURACIL [Concomitant]
     Route: 041
     Dates: start: 20101008, end: 20101008
  2. CYCLOPHOSPHAMIDE [Concomitant]
     Route: 041
     Dates: start: 20101008, end: 20101008
  3. EPIRUBICIN [Concomitant]
     Route: 041
     Dates: start: 20101119, end: 20101119
  4. DOCETAXEL [Suspect]
     Dosage: 158MG
     Route: 041
     Dates: start: 20101210, end: 20101210
  5. EPIRUBICIN [Concomitant]
     Route: 041
     Dates: start: 20101008, end: 20101008
  6. CYCLOPHOSPHAMIDE [Concomitant]
     Route: 041
     Dates: start: 20101119, end: 20101119
  7. FLUOROURACIL [Concomitant]
     Route: 041
     Dates: start: 20101119, end: 20101119

REACTIONS (5)
  - SUBILEUS [None]
  - MULTI-ORGAN FAILURE [None]
  - ABDOMINAL PAIN [None]
  - DIARRHOEA [None]
  - SEPSIS [None]
